FAERS Safety Report 21082031 (Version 1)
Quarter: 2022Q3

REPORT INFORMATION
  Report Type: Spontaneous
  Country: US (occurrence: None)
  Receive Date: 20220714
  Receipt Date: 20220714
  Transmission Date: 20221027
  Serious: No
  Sender: FDA-Public Use
  Company Number: None

PATIENT
  Sex: Female

DRUGS (1)
  1. TALTZ [Suspect]
     Active Substance: IXEKIZUMAB
     Indication: Psoriatic arthropathy
     Dosage: 80 MG MONTHLY SC?
     Route: 058
     Dates: start: 202001

REACTIONS (5)
  - Therapy non-responder [None]
  - Arthritis [None]
  - Pain [None]
  - Insomnia [None]
  - Gait inability [None]
